FAERS Safety Report 8399420-2 (Version None)
Quarter: 2012Q2

REPORT INFORMATION
  Report Type: 
  Country: None (occurrence: None)
  Receive Date: 20120531
  Receipt Date: 20120530
  Transmission Date: 20120825
  Serious: Yes (Other)
  Sender: FDA-Public Use
  Company Number: DE-BAYER-2011-122975

PATIENT
  Sex: Female
  Weight: 56 kg

DRUGS (2)
  1. OPIPRAMOL [Concomitant]
     Indication: DEPRESSION
     Dosage: DAILY DOSE 150 MG
     Route: 048
     Dates: start: 20100702
  2. BETASERON [Suspect]
     Indication: MULTIPLE SCLEROSIS
     Dosage: UNK
     Dates: start: 20070715

REACTIONS (1)
  - BASAL CELL CARCINOMA [None]
